FAERS Safety Report 6577299-9 (Version None)
Quarter: 2010Q1

REPORT INFORMATION
  Report Type: 
  Country: None (occurrence: None)
  Receive Date: 20100210
  Receipt Date: 20100104
  Transmission Date: 20100710
  Serious: Yes (Other)
  Sender: FDA-Public Use
  Company Number: PHHY2009GB19241

PATIENT
  Age: 79 Year
  Sex: Male

DRUGS (10)
  1. LAMISIL [Suspect]
     Indication: ONYCHOMYCOSIS
     Dosage: 250 MG, UNK
     Dates: start: 20090316, end: 20090408
  2. ADALAT [Concomitant]
     Dosage: 90 MG, QD
  3. ASPIRIN [Concomitant]
     Dosage: 75 MG, QD
  4. CARMELLOSE [Concomitant]
     Dosage: 1 %, BID
  5. CO-CODAMOL [Concomitant]
     Indication: PAIN
     Dosage: PRN
  6. FLUNISOLIDE [Concomitant]
     Dosage: 25 UG, UNK
     Route: 045
  7. GLYCERYL TRINITRATE [Concomitant]
     Dosage: 300 UG, UNK
  8. MEBEVERINE [Concomitant]
     Indication: ABDOMINAL PAIN
     Dosage: 135 MG, PRN
  9. NITRAZEPAM [Concomitant]
     Dosage: 5 MG, QD
  10. OMEPRAZOLE [Concomitant]
     Dosage: 20 MG, QD

REACTIONS (4)
  - ASTHENIA [None]
  - LETHARGY [None]
  - NEUTROPHIL COUNT DECREASED [None]
  - WHITE BLOOD CELL COUNT DECREASED [None]
